FAERS Safety Report 6873341-6 (Version None)
Quarter: 2010Q3

REPORT INFORMATION
  Report Type: 
  Country: None (occurrence: None)
  Receive Date: 20100723
  Receipt Date: 20090420
  Transmission Date: 20110219
  Serious: No
  Sender: FDA-Public Use
  Company Number: US-PFIZER INC-2009152096

PATIENT
  Sex: Female
  Weight: 69 kg

DRUGS (3)
  1. CHANTIX [Suspect]
     Indication: SMOKING CESSATION THERAPY
     Dosage: 0.5 MG, 2X/DAY
     Route: 048
     Dates: start: 20081201, end: 20090101
  2. TRICOR [Interacting]
     Indication: BLOOD TRIGLYCERIDES INCREASED
     Dosage: 145 MG, 1X/DAY
     Route: 048
     Dates: start: 20081201
  3. KLONOPIN [Concomitant]
     Dosage: UNK

REACTIONS (7)
  - AGITATION [None]
  - DIZZINESS [None]
  - DRUG DOSE OMISSION [None]
  - DRUG INTERACTION [None]
  - HEADACHE [None]
  - MALAISE [None]
  - NERVOUSNESS [None]
